FAERS Safety Report 25468526 (Version 1)
Quarter: 2025Q2

REPORT INFORMATION
  Report Type: Spontaneous
  Country: US (occurrence: US)
  Receive Date: 20250623
  Receipt Date: 20250623
  Transmission Date: 20250716
  Serious: No
  Sender: BRISTOL-MYERS SQUIBB COMPANY
  Company Number: US-BRISTOL-MYERS SQUIBB COMPANY-2025-088429

PATIENT
  Age: 59 Year
  Sex: Female

DRUGS (1)
  1. AUGTYRO [Suspect]
     Active Substance: REPOTRECTINIB
     Indication: Product used for unknown indication
     Dosage: DOSE : TAKE 3 CAPSULES TWICE DAILY;     FREQ : TWICE DAILY
     Route: 048

REACTIONS (1)
  - Intentional product use issue [Unknown]
